FAERS Safety Report 24590872 (Version 1)
Quarter: 2024Q4

REPORT INFORMATION
  Report Type: Spontaneous
  Country: ES (occurrence: None)
  Receive Date: 20241107
  Receipt Date: 20241107
  Transmission Date: 20250115
  Serious: Yes (Death)
  Sender: UNICHEM
  Company Number: ES-Unichem Pharmaceuticals (USA) Inc-UCM202411-001454

PATIENT
  Age: 92 Year
  Sex: Female

DRUGS (8)
  1. LOSARTAN [Suspect]
     Active Substance: LOSARTAN
     Indication: Cardiac failure
     Dosage: UNKNOWN
  2. LOSARTAN [Suspect]
     Active Substance: LOSARTAN
     Indication: Hypertension
  3. CHLORTHALIDONE [Suspect]
     Active Substance: CHLORTHALIDONE
     Indication: Cardiac failure
     Dosage: UNKNOWN
  4. CHLORTHALIDONE [Suspect]
     Active Substance: CHLORTHALIDONE
     Indication: Hypertension
  5. FUROSEMIDE [Suspect]
     Active Substance: FUROSEMIDE
     Indication: Cardiac failure
     Dosage: UNKNOWN
  6. FUROSEMIDE [Suspect]
     Active Substance: FUROSEMIDE
     Indication: Hypertension
  7. SPIRONOLACTONE [Suspect]
     Active Substance: SPIRONOLACTONE
     Indication: Cardiac failure
     Dosage: UNKNOWN
  8. SPIRONOLACTONE [Suspect]
     Active Substance: SPIRONOLACTONE
     Indication: Hypertension

REACTIONS (3)
  - Dehydration [Fatal]
  - Hyponatraemia [Unknown]
  - Product use in unapproved indication [Unknown]
